FAERS Safety Report 4735155-2 (Version None)
Quarter: 2005Q3

REPORT INFORMATION
  Report Type: 
  Country: None (occurrence: None)
  Receive Date: 20050804
  Receipt Date: 20050711
  Transmission Date: 20060218
  Serious: Yes (Other)
  Sender: FDA-Public Use
  Company Number: USA050598416

PATIENT
  Age: 61 Year
  Sex: Female

DRUGS (11)
  1. FORTEO [Suspect]
     Indication: OSTEOPOROSIS
     Dates: start: 20041001, end: 20050516
  2. AMBIEN [Concomitant]
  3. VALSARTAN [Concomitant]
  4. EFFEXOR [Concomitant]
  5. NEURONTIN [Concomitant]
  6. OXYCONTIN [Concomitant]
  7. PROTONIX [Concomitant]
  8. COUMADIN [Concomitant]
  9. ARANESP [Concomitant]
  10. FLEXERIL [Concomitant]
  11. ACETAMINOPHEN W/ PROPOXYPHENE HCL [Concomitant]

REACTIONS (10)
  - ARTHRALGIA [None]
  - EXTRASKELETAL OSSIFICATION [None]
  - EYE PAIN [None]
  - EYE SWELLING [None]
  - FACIAL PAIN [None]
  - JOINT SWELLING [None]
  - OEDEMA PERIPHERAL [None]
  - PAIN IN EXTREMITY [None]
  - PHARMACEUTICAL PRODUCT COMPLAINT [None]
  - SWELLING FACE [None]
